FAERS Safety Report 22629729 (Version 1)
Quarter: 2023Q2

REPORT INFORMATION
  Report Type: Spontaneous
  Country: US (occurrence: US)
  Receive Date: 20230622
  Receipt Date: 20230622
  Transmission Date: 20230722
  Serious: No
  Sender: FDA-Public Use
  Company Number: US-JAZZ PHARMACEUTICALS-2023-US-006397

PATIENT
  Sex: Female

DRUGS (2)
  1. ZEPZELCA [Suspect]
     Active Substance: LURBINECTEDIN
     Indication: Breast cancer
  2. ZEPZELCA [Suspect]
     Active Substance: LURBINECTEDIN
     Indication: Hepatic cancer

REACTIONS (1)
  - Off label use [Unknown]
